FAERS Safety Report 16934947 (Version 2)
Quarter: 2019Q4

REPORT INFORMATION
  Report Type: Spontaneous
  Country: JP (occurrence: JP)
  Receive Date: 20191018
  Receipt Date: 20191107
  Transmission Date: 20200122
  Serious: Yes (Death, Hospitalization)
  Sender: FDA-Public Use
  Company Number: JP-ELI_LILLY_AND_COMPANY-JP201910008280

PATIENT
  Age: 75 Year
  Sex: Female
  Weight: 36 kg

DRUGS (13)
  1. ZACRAS [Concomitant]
     Active Substance: AMLODIPINE BESYLATE\AZILSARTAN
     Indication: HYPERTENSION
  2. METHYCOBAL [Concomitant]
     Active Substance: METHYLCOBALAMIN
     Indication: ANAEMIA MEGALOBLASTIC
  3. PREDNISOLONE. [Concomitant]
     Active Substance: PREDNISOLONE
     Indication: RHEUMATOID ARTHRITIS
  4. RHEUMATREX [Concomitant]
     Active Substance: METHOTREXATE SODIUM
     Indication: RHEUMATOID ARTHRITIS
  5. BENET [Concomitant]
     Active Substance: RISEDRONATE SODIUM
     Indication: OSTEOPOROSIS
  6. KLARICID [CLARITHROMYCIN] [Concomitant]
     Indication: RESPIRATORY TRACT INFLAMMATION
  7. OLUMIANT [Suspect]
     Active Substance: BARICITINIB
     Indication: RHEUMATOID ARTHRITIS
     Dosage: 4 MG, DAILY
     Route: 048
     Dates: start: 20171003, end: 20180320
  8. ALFAROL [Concomitant]
     Active Substance: ALFACALCIDOL
     Indication: OSTEOPOROSIS
  9. FERROMIA [Concomitant]
     Active Substance: SODIUM FERROUS CITRATE
     Indication: ANAEMIA MEGALOBLASTIC
  10. CELECOX [Concomitant]
     Active Substance: CELECOXIB
     Indication: RHEUMATOID ARTHRITIS
  11. FOLIAMIN [Concomitant]
     Active Substance: FOLIC ACID
     Indication: PROPHYLAXIS
  12. MUCODYNE [Concomitant]
     Active Substance: CARBOCYSTEINE
     Indication: RESPIRATORY TRACT INFLAMMATION
  13. LOXONIN PAP [Concomitant]
     Indication: RHEUMATOID ARTHRITIS

REACTIONS (2)
  - Pneumonia [Unknown]
  - Bronchitis chronic [Fatal]

NARRATIVE: CASE EVENT DATE: 20190522
